FAERS Safety Report 9013948 (Version 1)
Quarter: 2012Q4

REPORT INFORMATION
  Report Type: Spontaneous
  Country: US (occurrence: None)
  Receive Date: 20121231
  Receipt Date: 20121231
  Transmission Date: 20130627
  Serious: Yes (Hospitalization)
  Sender: FDA-Public Use
  Company Number: UTC-027196

PATIENT
  Age: 68 Year
  Sex: Female
  Weight: 88.18 kg

DRUGS (4)
  1. TYVASO (6 MICROGRAM, AEROSOL FOR INHALATION) (TREPROSTINIL SODIUM) [Suspect]
     Indication: PRIMARY PULMONARY HYPERTENSION
     Dates: start: 20121011
  2. TYVASO (6 MICROGRAM, AEROSOL FOR INHALATION) (TREPROSTINIL SODIUM) [Suspect]
     Indication: PRIMARY PULMONARY HYPERTENSION
  3. REVATIO [Concomitant]
  4. TRACLEER (BOSENTAN) [Concomitant]

REACTIONS (3)
  - Confusional state [None]
  - Pulmonary arterial hypertension [None]
  - Weight decreased [None]
